FAERS Safety Report 21964263 (Version 2)
Quarter: 2023Q1

REPORT INFORMATION
  Report Type: Report from Study
  Country: US (occurrence: US)
  Receive Date: 20230207
  Receipt Date: 20230208
  Transmission Date: 20230417
  Serious: No
  Sender: FDA-Public Use
  Company Number: US-002147023-NVSC2023US026117

PATIENT
  Sex: Female

DRUGS (1)
  1. TREPROSTINIL [Suspect]
     Active Substance: TREPROSTINIL
     Indication: Pulmonary arterial hypertension
     Dosage: 54.5 UNK, CONT (MG/KG/MIN)
     Route: 042
     Dates: start: 20190626

REACTIONS (2)
  - Infusion site erythema [Recovering/Resolving]
  - Infusion site discharge [Recovering/Resolving]
